FAERS Safety Report 21314965 (Version 3)
Quarter: 2022Q4

REPORT INFORMATION
  Report Type: Spontaneous
  Country: IN (occurrence: IN)
  Receive Date: 20220909
  Receipt Date: 20221219
  Transmission Date: 20230112
  Serious: Yes (Other)
  Sender: FDA-Public Use
  Company Number: IN-PFIZER INC-2021419054

PATIENT
  Age: 73 Year
  Sex: Female

DRUGS (6)
  1. PALBOCICLIB [Suspect]
     Active Substance: PALBOCICLIB
     Indication: Breast cancer metastatic
     Dosage: 125 MG, CYCLIC (DAILY (21/28) FOR 3 WEEKS ON, 1 WEEK OFF)
     Route: 048
     Dates: start: 20210127
  2. PALBOCICLIB [Suspect]
     Active Substance: PALBOCICLIB
     Dosage: 125MG DAILY X 21 DAYS, THEN 7 DAYS OFF, ON A 29 DAY CYCLE
  3. FEMARA [Concomitant]
     Active Substance: LETROZOLE
     Dosage: 2.5 MG, DAILY
     Dates: start: 202101
  4. SHELCAL [CALCIUM CARBONATE;COLECALCIFEROL] [Concomitant]
     Dosage: 500 MG, 1X/DAY
  5. SHELCAL [CALCIUM CARBONATE;COLECALCIFEROL] [Concomitant]
     Dosage: 500 MG, 2X/DAY
  6. TAYO [COLECALCIFEROL] [Concomitant]
     Dosage: 60K

REACTIONS (11)
  - Bicytopenia [Unknown]
  - White blood cell count decreased [Unknown]
  - Neoplasm progression [Unknown]
  - Somnolence [Unknown]
  - Vitamin B12 decreased [Unknown]
  - Vitamin D increased [Unknown]
  - Blood uric acid abnormal [Unknown]
  - Thyroid function test abnormal [Unknown]
  - Lipids abnormal [Unknown]
  - Haemoglobin decreased [Unknown]
  - Neutrophil count decreased [Unknown]
